FAERS Safety Report 6635002-8 (Version None)
Quarter: 2010Q1

REPORT INFORMATION
  Report Type: 
  Country: None (occurrence: None)
  Receive Date: 20100312
  Receipt Date: 20100312
  Transmission Date: 20100710
  Serious: Yes (Other)
  Sender: FDA-Public Use
  Company Number: None

PATIENT
  Age: 63 Year
  Sex: Male
  Weight: 81.6475 kg

DRUGS (2)
  1. EQUALINE TUSSIN COUGH, COLD +  10MG DEX, 100MG GUAI, 5 MG SUPERVALU, I [Suspect]
     Indication: CHEST DISCOMFORT
     Dosage: 2 TSPS EVERY 4 HOURS PO
     Route: 048
     Dates: start: 20100310, end: 20100310
  2. EQUALINE TUSSIN COUGH, COLD +  10MG DEX, 100MG GUAI, 5 MG SUPERVALU, I [Suspect]
     Indication: SINUS CONGESTION
     Dosage: 2 TSPS EVERY 4 HOURS PO
     Route: 048
     Dates: start: 20100310, end: 20100310

REACTIONS (3)
  - HYPOAESTHESIA FACIAL [None]
  - HYPOAESTHESIA ORAL [None]
  - PARALYSIS [None]
